FAERS Safety Report 9844337 (Version 1)
Quarter: 2014Q1

REPORT INFORMATION
  Report Type: Spontaneous
  Country: US (occurrence: None)
  Receive Date: 20140123
  Receipt Date: 20140123
  Transmission Date: 20141002
  Serious: No
  Sender: FDA-Public Use
  Company Number: None

PATIENT
  Age: 51 Year
  Sex: Female
  Weight: 65.77 kg

DRUGS (1)
  1. RIZATRIPTAN [Suspect]
     Indication: MIGRAINE
     Dosage: 1 AS NEEDED TAKEN BY MOUTH
     Route: 048
     Dates: start: 20140118, end: 20140118

REACTIONS (5)
  - Dizziness [None]
  - Nausea [None]
  - Chest pain [None]
  - Migraine [None]
  - Drug ineffective [None]
